FAERS Safety Report 4586934-6 (Version None)
Quarter: 2005Q1

REPORT INFORMATION
  Report Type: 
  Country: None (occurrence: None)
  Receive Date: 20050218
  Receipt Date: 20050209
  Transmission Date: 20050727
  Serious: Yes (Death)
  Sender: FDA-Public Use
  Company Number: US-JNJFOC-20050202571

PATIENT
  Age: 85 Year
  Sex: Male

DRUGS (3)
  1. REOPRO [Suspect]
     Indication: ACUTE MYOCARDIAL INFARCTION
     Route: 042
  2. HEPARIN [Concomitant]
  3. HEPARIN [Concomitant]

REACTIONS (1)
  - SUBDURAL HAEMATOMA [None]
